FAERS Safety Report 6692505-8 (Version None)
Quarter: 2010Q2

REPORT INFORMATION
  Report Type: 
  Country: None (occurrence: None)
  Receive Date: 20100422
  Receipt Date: 20100412
  Transmission Date: 20101027
  Serious: Yes (Hospitalization)
  Sender: FDA-Public Use
  Company Number: B0646603A

PATIENT
  Sex: Female

DRUGS (4)
  1. ZOVIRAX [Suspect]
     Indication: HERPES VIRUS INFECTION
     Route: 048
     Dates: start: 20100209, end: 20100212
  2. ISENTRESS [Suspect]
     Indication: HIV INFECTION
     Dosage: 400MG TWICE PER DAY
     Route: 048
     Dates: start: 20100208, end: 20100303
  3. KIVEXA [Concomitant]
     Indication: HIV INFECTION
     Route: 065
  4. AVAMYS [Concomitant]
     Indication: DRUG USE FOR UNKNOWN INDICATION
     Route: 065

REACTIONS (4)
  - ALDOLASE INCREASED [None]
  - MOBILITY DECREASED [None]
  - MYALGIA [None]
  - PARAESTHESIA [None]
